FAERS Safety Report 18108501 (Version 2)
Quarter: 2020Q3

REPORT INFORMATION
  Report Type: Spontaneous
  Country: BR (occurrence: BR)
  Receive Date: 20200803
  Receipt Date: 20200814
  Transmission Date: 20201103
  Serious: Yes (Hospitalization)
  Sender: FDA-Public Use
  Company Number: BR-ABBVIE-20P-020-3500927-00

PATIENT
  Age: 64 Year
  Sex: Female

DRUGS (4)
  1. PANTOPRAZOLE [Concomitant]
     Active Substance: PANTOPRAZOLE
     Indication: PROPHYLAXIS
  2. ARAVA [Concomitant]
     Active Substance: LEFLUNOMIDE
     Indication: ARTHRITIS
     Dosage: SUSPENDED AFTER 2ND LOSS OF CONSCIOUSNESS
  3. CREON [Suspect]
     Active Substance: PANCRELIPASE AMYLASE\PANCRELIPASE LIPASE\PANCRELIPASE PROTEASE
     Indication: PRODUCT USED FOR UNKNOWN INDICATION
     Dosage: MORNING/LUNCH/DINNER; SUSPENDED AFTER 2ND LOSS OF CONSCIOUSNESS?25000
     Route: 048
  4. PANTOPRAZOLE [Concomitant]
     Active Substance: PANTOPRAZOLE
     Indication: VOMITING
     Dosage: SUSPENDED AFTER 2ND LOSS OF CONSCIOUSNESS

REACTIONS (16)
  - Loss of consciousness [Recovering/Resolving]
  - Dizziness [Unknown]
  - Loss of consciousness [Recovered/Resolved]
  - Coordination abnormal [Recovering/Resolving]
  - Myalgia [Recovering/Resolving]
  - Discomfort [Recovering/Resolving]
  - Chest pain [Recovered/Resolved]
  - Weight decreased [Unknown]
  - Influenza [Unknown]
  - Pain in extremity [Recovering/Resolving]
  - Asthenia [Recovering/Resolving]
  - Heart alternation [Unknown]
  - Speech disorder [Recovering/Resolving]
  - Memory impairment [Unknown]
  - Dyspnoea [Recovered/Resolved]
  - Loss of control of legs [Recovering/Resolving]

NARRATIVE: CASE EVENT DATE: 20200717
